FAERS Safety Report 13114282 (Version 1)
Quarter: 2017Q1

REPORT INFORMATION
  Report Type: Spontaneous
  Country: US (occurrence: US)
  Receive Date: 20170113
  Receipt Date: 20170113
  Transmission Date: 20170428
  Serious: No
  Sender: FDA-Public Use
  Company Number: US-PFIZER INC-2016551992

PATIENT
  Age: 51 Year
  Sex: Female
  Weight: 106 kg

DRUGS (26)
  1. RAPAMUNE [Suspect]
     Active Substance: SIROLIMUS
     Indication: RENAL TRANSPLANT
     Dosage: 5 MG, UNK
  2. OMEPRAZOLE. [Concomitant]
     Active Substance: OMEPRAZOLE
     Dosage: 20 MG, 2X/DAY
     Dates: start: 20161121
  3. FUROSEMIDE. [Concomitant]
     Active Substance: FUROSEMIDE
     Dosage: 40 MG, 2X/DAY
     Dates: start: 20161121
  4. HUMALOG [Concomitant]
     Active Substance: INSULIN LISPRO
     Dosage: UNK, CYCLIC (15 UNITS, QAM BREAKFAST)
     Dates: start: 20161121
  5. OMEPRAZOLE. [Concomitant]
     Active Substance: OMEPRAZOLE
     Dosage: 20 MG, DAILY
     Dates: start: 20161121
  6. NORVASC [Concomitant]
     Active Substance: AMLODIPINE BESYLATE
     Dosage: 10 MG, CYCLIC
  7. PREDNISONE. [Concomitant]
     Active Substance: PREDNISONE
     Dosage: 5 MG, DAILY
     Dates: start: 20161121
  8. LABETALOL [Concomitant]
     Active Substance: LABETALOL\LABETALOL HYDROCHLORIDE
     Dosage: 300 MG, 2X/DAY
     Dates: start: 20161121
  9. RAPAMUNE [Suspect]
     Active Substance: SIROLIMUS
     Dosage: 1.5 MG, 1X/DAY  (1 AND HALF QAM)
     Dates: start: 20161121
  10. LEVEMIR [Concomitant]
     Active Substance: INSULIN DETEMIR
     Dosage: UNK(30 UNITS QHS DINNER)
     Dates: start: 20161121
  11. HUMALOG [Concomitant]
     Active Substance: INSULIN LISPRO
     Dosage: UNK, 1X/DAY (10 UNITS, QHS,AT BEDTIME)
     Dates: start: 20161121
  12. ROCALTROL [Concomitant]
     Active Substance: CALCITRIOL
     Dosage: 0.5 UG, DAILY
     Dates: start: 20161121
  13. LEVEMIR [Concomitant]
     Active Substance: INSULIN DETEMIR
     Dosage: UNK, 1X/DAY(35 UNITS QAM)
     Dates: start: 20161121
  14. HUMALOG [Concomitant]
     Active Substance: INSULIN LISPRO
     Dosage: UNK, CYCLIC (15 UNITS, LUNCH)
     Dates: start: 20161121
  15. CLONIDINE. [Concomitant]
     Active Substance: CLONIDINE
     Dosage: 0.3 MG, 3X/DAY
     Dates: start: 20161121
  16. RAPAMUNE [Suspect]
     Active Substance: SIROLIMUS
     Dosage: 3 MG, DAILY (3 DF EVERY MORNING)
     Dates: start: 20161121
  17. LABETALOL [Concomitant]
     Active Substance: LABETALOL\LABETALOL HYDROCHLORIDE
     Dosage: 200 MG, 4X/DAY (Q6H)
     Dates: start: 20161121
  18. PRAVASTATIN SODIUM. [Concomitant]
     Active Substance: PRAVASTATIN SODIUM
     Dosage: 20 MG, DAILY
     Dates: start: 20161121
  19. NEORAL [Concomitant]
     Active Substance: CYCLOSPORINE
     Dosage: 25 MG, 2X/DAY (MODIFIED)
     Dates: start: 20161121
  20. LOSARTAN POTASSIUM. [Concomitant]
     Active Substance: LOSARTAN POTASSIUM
     Dosage: 50 MG, DAILY
     Dates: start: 20161121
  21. LEVEMIR [Concomitant]
     Active Substance: INSULIN DETEMIR
     Dosage: UNK, 1X/DAY (35 UNITS QPM)
     Dates: start: 20161121
  22. LEVEMIR [Concomitant]
     Active Substance: INSULIN DETEMIR
     Dosage: UNK(34 UNITS QAM)
     Dates: start: 20161121
  23. HUMALOG [Concomitant]
     Active Substance: INSULIN LISPRO
     Dosage: UNK, CYCLIC (15 UNITS, QD,AT LUNCH)
     Dates: start: 20161121
  24. FISH OIL OMEGA 3 [Concomitant]
     Dosage: [(FISH OIL: 600MG,OMEGA3: 300MG)]
     Dates: start: 20161121
  25. IRON [Concomitant]
     Active Substance: IRON
     Dosage: 65 MG, 3X/DAY
     Dates: start: 20161121
  26. HYDRALAZINE [Concomitant]
     Active Substance: HYDRALAZINE HYDROCHLORIDE
     Dosage: 100 MG, 1X/DAY
     Dates: start: 20161121

REACTIONS (2)
  - Asthenia [Unknown]
  - Paraesthesia [Unknown]
